FAERS Safety Report 17301570 (Version 2)
Quarter: 2020Q1

REPORT INFORMATION
  Report Type: Report from Study
  Country: US (occurrence: US)
  Receive Date: 20200122
  Receipt Date: 20200204
  Transmission Date: 20200409
  Serious: Yes (Death, Hospitalization)
  Sender: FDA-Public Use
  Company Number: US-EISAI MEDICAL RESEARCH-EC-2020-068606

PATIENT
  Age: 71 Year
  Sex: Male
  Weight: 79.2 kg

DRUGS (2)
  1. LENVATINIB [Suspect]
     Active Substance: LENVATINIB
     Indication: GASTROOESOPHAGEAL CANCER
     Route: 048
     Dates: start: 20191218, end: 20200114
  2. PEMBROLIZUMAB. [Suspect]
     Active Substance: PEMBROLIZUMAB
     Indication: GASTROOESOPHAGEAL CANCER
     Route: 041
     Dates: start: 20191226, end: 20191226

REACTIONS (1)
  - Hepatic failure [Fatal]

NARRATIVE: CASE EVENT DATE: 20200115
